FAERS Safety Report 26013897 (Version 1)
Quarter: 2025Q4

REPORT INFORMATION
  Report Type: Spontaneous
  Country: CN (occurrence: CN)
  Receive Date: 20251108
  Receipt Date: 20251108
  Transmission Date: 20260118
  Serious: Yes (Other)
  Sender: NOVARTIS
  Company Number: CN-002147023-NVSC2025CN169699

PATIENT
  Sex: Female

DRUGS (1)
  1. ENTRESTO [Suspect]
     Active Substance: SACUBITRIL\VALSARTAN
     Indication: Essential hypertension
     Dosage: 1 DOSAGE FORM, QD (1 TABLET (200MG) EVERY MORNING)
     Route: 048
     Dates: start: 20251022

REACTIONS (6)
  - Aortic arteriosclerosis [Unknown]
  - Blood pressure increased [Unknown]
  - Lipids increased [Unknown]
  - Blood glucose increased [Unknown]
  - Intervertebral disc protrusion [Unknown]
  - Hypoaesthesia [Unknown]
